FAERS Safety Report 10225561 (Version 2)
Quarter: 2014Q2

REPORT INFORMATION
  Report Type: Spontaneous
  Country: US (occurrence: US)
  Receive Date: 20140609
  Receipt Date: 20140609
  Transmission Date: 20141212
  Serious: No
  Sender: FDA-Public Use
  Company Number: US-ASTELLAS-2013US013302

PATIENT
  Sex: Male

DRUGS (3)
  1. PROGRAF [Suspect]
     Indication: LUNG TRANSPLANT
     Route: 048
     Dates: start: 20091123, end: 2013
  2. PROGRAF [Suspect]
     Route: 048
  3. PROGRAF [Suspect]
     Route: 048

REACTIONS (1)
  - Drug ineffective for unapproved indication [Unknown]
